FAERS Safety Report 23470254 (Version 1)
Quarter: 2024Q1

REPORT INFORMATION
  Report Type: Spontaneous
  Country: US (occurrence: US)
  Receive Date: 20240202
  Receipt Date: 20240202
  Transmission Date: 20240409
  Serious: Yes (Other)
  Sender: FDA-Public Use
  Company Number: US-BRAINTREE LABORATORIES, INC.-2024BTE00031

PATIENT
  Sex: Female

DRUGS (1)
  1. PEG-3350 AND ELECTROLYTES [Suspect]
     Active Substance: POLYETHYLENE GLYCOL 3350\POTASSIUM CHLORIDE\SODIUM BICARBONATE\SODIUM CHLORIDE\SODIUM SULFATE
     Indication: Colonoscopy
     Dosage: ^TWO GLASSES^
     Route: 048
     Dates: start: 20240116, end: 20240116

REACTIONS (4)
  - Iritis [Unknown]
  - Feeling hot [Unknown]
  - Erythema [Unknown]
  - Chills [Unknown]

NARRATIVE: CASE EVENT DATE: 20240101
